FAERS Safety Report 5892305-2 (Version None)
Quarter: 2008Q3

REPORT INFORMATION
  Report Type: 
  Country: None (occurrence: None)
  Receive Date: 20080919
  Receipt Date: 20080908
  Transmission Date: 20090109
  Serious: Yes (Disabling, Other)
  Sender: FDA-Public Use
  Company Number: 2008-03289

PATIENT
  Age: 71 Year
  Sex: Male

DRUGS (16)
  1. VELCADE [Suspect]
     Indication: MULTIPLE MYELOMA
     Dates: start: 20080201, end: 20080506
  2. THALIDOMIDE [Suspect]
     Indication: MULTIPLE MYELOMA
     Dosage: 200 MG, ORAL
     Route: 048
     Dates: start: 20071109, end: 20080527
  3. ALLEGRA [Concomitant]
  4. ASPIRIN [Concomitant]
  5. COUMADIN [Concomitant]
  6. LOPRESSOR [Concomitant]
  7. MULTIVITAMIN [Concomitant]
  8. ZANTAC 150 [Concomitant]
  9. PROCARDIA [Concomitant]
  10. NASONEX [Concomitant]
  11. ACETAMINOPHEN [Concomitant]
  12. ADVIL [Concomitant]
  13. ZOMETA [Concomitant]
  14. IBUPROFEN [Concomitant]
  15. SUDAFED 12 HOUR [Concomitant]
  16. FEXOFENADINE HCL [Concomitant]

REACTIONS (10)
  - BRONCHITIS [None]
  - DYSPHONIA [None]
  - HAEMATOCRIT DECREASED [None]
  - HAEMOGLOBIN DECREASED [None]
  - NEUROPATHY PERIPHERAL [None]
  - OEDEMA PERIPHERAL [None]
  - PARAESTHESIA [None]
  - PNEUMONITIS [None]
  - SOMNOLENCE [None]
  - TREMOR [None]
